FAERS Safety Report 9846677 (Version 2)
Quarter: 2014Q1

REPORT INFORMATION
  Report Type: Spontaneous
  Country: US (occurrence: US)
  Receive Date: 20140127
  Receipt Date: 20140203
  Transmission Date: 20141002
  Serious: Yes (Other)
  Sender: FDA-Public Use
  Company Number: US-PERRIGO-14US000516

PATIENT
  Age: 42 Year
  Sex: Male
  Weight: 63.49 kg

DRUGS (2)
  1. NAPROXEN SODIUM 220 MG 368 [Suspect]
     Indication: PAIN
     Dosage: 440 MG, PRN
     Route: 048
     Dates: start: 2011, end: 201401
  2. NAPROXEN SODIUM 220 MG 368 [Suspect]
     Indication: ARTHRALGIA
     Dosage: 440 MG, SINGLE
     Route: 048
     Dates: start: 20140115, end: 20140115

REACTIONS (11)
  - Anaphylactic reaction [Recovered/Resolved]
  - Dyspnoea [Recovered/Resolved]
  - Chest discomfort [Recovered/Resolved]
  - Speech disorder [Recovered/Resolved]
  - Facial paresis [Recovered/Resolved]
  - Hypoaesthesia [Recovered/Resolved]
  - Urticaria [Recovered/Resolved]
  - Pruritus [Recovered/Resolved]
  - Musculoskeletal disorder [Recovered/Resolved]
  - Tremor [Recovered/Resolved]
  - Erythema [Recovered/Resolved]
